FAERS Safety Report 19701698 (Version 1)
Quarter: 2021Q3

REPORT INFORMATION
  Report Type: Other
  Country: US (occurrence: US)
  Receive Date: 20210813
  Receipt Date: 20210813
  Transmission Date: 20211014
  Serious: Yes (Hospitalization)
  Sender: FDA-Public Use
  Company Number: US-ROCHE-2884162

PATIENT
  Age: 61 Year
  Sex: Male

DRUGS (1)
  1. OCREVUS [Suspect]
     Active Substance: OCRELIZUMAB
     Indication: PRIMARY PROGRESSIVE MULTIPLE SCLEROSIS
     Dosage: DATE OF TREATMENT: 29/DEC/2017, 12/JAN/2018, 09/JUL/2018, 07/JAN/2019, 12/SEP/2019, 31/MAR/2020, 15/
     Route: 042
     Dates: start: 202009

REACTIONS (7)
  - Drug ineffective [Unknown]
  - Dyskinesia [Recovered/Resolved]
  - Skin ulcer [Unknown]
  - Muscular weakness [Not Recovered/Not Resolved]
  - Pyrexia [Unknown]
  - Nephrolithiasis [Not Recovered/Not Resolved]
  - Infection [Not Recovered/Not Resolved]

NARRATIVE: CASE EVENT DATE: 202012
